FAERS Safety Report 6933073-2 (Version None)
Quarter: 2010Q3

REPORT INFORMATION
  Report Type: 
  Country: None (occurrence: None)
  Receive Date: 20100819
  Receipt Date: 20100811
  Transmission Date: 20110219
  Serious: Yes (Other)
  Sender: FDA-Public Use
  Company Number: NL-ABBOTT-10P-114-0663667-00

PATIENT
  Sex: Male
  Weight: 96.5 kg

DRUGS (7)
  1. LEUPROLIDE ACETATE [Suspect]
     Indication: PROSTATE CANCER
     Route: 058
  2. BICALUTAMIDE [Concomitant]
     Indication: PROSTATE CANCER
     Route: 048
     Dates: start: 20040101
  3. ENALAPRIL MALEATE AND HYDROCHLOROTHIAZIDE [Concomitant]
     Indication: BLOOD PRESSURE INCREASED
     Dosage: 20/12.5MG-1 TABLET DAILY
     Route: 048
     Dates: start: 19900101
  4. RHINOCORT [Concomitant]
     Indication: UPPER-AIRWAY COUGH SYNDROME
     Dosage: 2 INHALATIONS-TWICE DAILY AS NEEDED
     Route: 055
     Dates: start: 20070101
  5. RHINOCORT [Concomitant]
     Indication: SINUS OPERATION
  6. ACYCLOVIR [Concomitant]
     Indication: PANOPHTHALMITIS
     Dosage: AS NEEDED 4 TIMES DAILY
     Route: 047
     Dates: start: 19900101
  7. ULTRACORTENOL [Concomitant]
     Indication: PANOPHTHALMITIS
     Dosage: AS NEEDED 3 TIMES DAILY
     Route: 047
     Dates: start: 19900101

REACTIONS (3)
  - CHRONIC SINUSITIS [None]
  - HOT FLUSH [None]
  - HYPERHIDROSIS [None]
